FAERS Safety Report 8611956 (Version 3)
Quarter: 2014Q2

REPORT INFORMATION
  Report Type: Spontaneous
  Country: US (occurrence: US)
  Receive Date: 20120613
  Receipt Date: 20140415
  Transmission Date: 20141212
  Serious: No
  Sender: FDA-Public Use
  Company Number: US-ASTRAZENECA-2012SE35810

PATIENT
  Age: 722 Month
  Sex: Male
  Weight: 79.4 kg

DRUGS (5)
  1. NEXIUM [Suspect]
     Indication: GASTROOESOPHAGEAL REFLUX DISEASE
     Route: 048
     Dates: start: 2003, end: 2010
  2. NEXIUM [Suspect]
     Indication: GASTROOESOPHAGEAL REFLUX DISEASE
     Dosage: 40 MG ONE TO TWO TIMES A DAY
     Route: 048
     Dates: start: 200304, end: 200911
  3. PRILOSEC [Suspect]
     Indication: GASTROOESOPHAGEAL REFLUX DISEASE
     Dosage: TAKEN AS NEEDED
     Route: 048
     Dates: start: 2000, end: 2002
  4. CALCIUM [Concomitant]
  5. VITAMIN D [Concomitant]

REACTIONS (6)
  - Osteoporosis [Unknown]
  - Foot fracture [Unknown]
  - Hand fracture [Unknown]
  - Osteopenia [Unknown]
  - Cataract [Unknown]
  - Vitamin D deficiency [Unknown]
